FAERS Safety Report 8055225-3 (Version None)
Quarter: 2012Q1

REPORT INFORMATION
  Report Type: 
  Country: None (occurrence: None)
  Receive Date: 20120119
  Receipt Date: 20120111
  Transmission Date: 20120608
  Serious: Yes (Other)
  Sender: FDA-Public Use
  Company Number: FR-SANOFI-AVENTIS-2011SA071991

PATIENT
  Sex: Female

DRUGS (4)
  1. VINORELBINE TARTRATE [Suspect]
     Indication: OVARIAN CANCER
     Route: 065
  2. PACLITAXEL [Suspect]
     Indication: OVARIAN CANCER
     Route: 065
  3. BEVACIZUMAB [Suspect]
     Indication: OVARIAN CANCER
     Route: 042
  4. DOCETAXEL [Suspect]
     Indication: OVARIAN CANCER
     Route: 065

REACTIONS (5)
  - GASTROINTESTINAL PERFORATION [None]
  - HYPERTENSION [None]
  - INTESTINAL PERFORATION [None]
  - PROTEINURIA [None]
  - FISTULA [None]
